FAERS Safety Report 7434213-1 (Version None)
Quarter: 2011Q2

REPORT INFORMATION
  Report Type: 
  Country: None (occurrence: None)
  Receive Date: 20110420
  Receipt Date: 20110420
  Transmission Date: 20111010
  Serious: Yes (Hospitalization)
  Sender: FDA-Public Use
  Company Number: None

PATIENT
  Age: 65 Year
  Sex: Male
  Weight: 86 kg

DRUGS (2)
  1. HEPARIN [Suspect]
     Indication: DEEP VEIN THROMBOSIS
     Dosage: 5000 UNITS TID SQ
     Route: 058
     Dates: start: 20110301, end: 20110319
  2. WARFARIN [Suspect]
     Dosage: 5 MG AT BEDTIME PO
     Route: 048
     Dates: start: 20110311, end: 20110313

REACTIONS (4)
  - ACTIVATED PARTIAL THROMBOPLASTIN TIME ABNORMAL [None]
  - HAEMORRHAGE [None]
  - INTERNATIONAL NORMALISED RATIO ABNORMAL [None]
  - RETROPERITONEAL HAEMORRHAGE [None]
